FAERS Safety Report 18550130 (Version 1)
Quarter: 2020Q4

REPORT INFORMATION
  Report Type: Spontaneous
  Country: MA (occurrence: MA)
  Receive Date: 20201126
  Receipt Date: 20201126
  Transmission Date: 20210114
  Serious: Yes (Other)
  Sender: FDA-Public Use
  Company Number: MA-BAUSCH-BL-2020-033615

PATIENT
  Age: 42 Year
  Sex: Male

DRUGS (7)
  1. IPRATROPIUM [Concomitant]
     Active Substance: IPRATROPIUM
     Indication: ASTHMA
  2. METHYLPREDNISOLONE. [Concomitant]
     Active Substance: METHYLPREDNISOLONE
     Route: 042
  3. OXYGEN. [Concomitant]
     Active Substance: OXYGEN
     Indication: ASTHMA
     Dosage: SUPPLEMENT OXYGEN
  4. SALBUTAMOL [Suspect]
     Active Substance: ALBUTEROL
     Indication: ASTHMA
     Dosage: INCREASED DOSES OF INHALED SALBUTAMOL AT HOME
     Route: 055
  5. SALBUTAMOL [Suspect]
     Active Substance: ALBUTEROL
     Dosage: SEVEN DOSES OF NEBULIZED SALBUTAMOL (35 MG IN TOTAL: 5 MG EVERY 20 MIN)
     Route: 055
  6. METHYLPREDNISOLONE. [Concomitant]
     Active Substance: METHYLPREDNISOLONE
     Indication: ASTHMA
     Route: 042
  7. MAGNESIUM SULFATE. [Concomitant]
     Active Substance: MAGNESIUM SULFATE
     Indication: ASTHMA
     Route: 040

REACTIONS (3)
  - Lactic acidosis [Recovered/Resolved]
  - Therapy non-responder [Unknown]
  - Respiratory failure [Recovered/Resolved]
